FAERS Safety Report 24702648 (Version 1)
Quarter: 2024Q4

REPORT INFORMATION
  Report Type: Other
  Country: ES (occurrence: ES)
  Receive Date: 20241205
  Receipt Date: 20241205
  Transmission Date: 20250114
  Serious: Yes (Life-Threatening, Hospitalization)
  Sender: Atnahs Healthcare
  Company Number: None

PATIENT
  Age: 55 Year
  Sex: Female

DRUGS (3)
  1. DIAZEPAM [Interacting]
     Active Substance: DIAZEPAM
     Indication: Suicide attempt
     Dosage: 500 MG ?NICA DOSIS
     Route: 048
     Dates: start: 20240526, end: 20240526
  2. TAPENTADOL [Interacting]
     Active Substance: TAPENTADOL
     Indication: Suicide attempt
     Dosage: 5000 MG ?NICA DOSIS
     Route: 048
     Dates: start: 20240526, end: 20240526
  3. RYBELSUS [Interacting]
     Active Substance: SEMAGLUTIDE
     Indication: Suicide attempt
     Dosage: 140 MG ?NICA DOSIS
     Route: 048
     Dates: start: 20240526, end: 20240526

REACTIONS (2)
  - Depressed level of consciousness [Recovered/Resolved]
  - Hypoxia [Recovered/Resolved]

NARRATIVE: CASE EVENT DATE: 20240526
